FAERS Safety Report 14172470 (Version 1)
Quarter: 2017Q4

REPORT INFORMATION
  Report Type: Spontaneous
  Country: US (occurrence: US)
  Receive Date: 20171108
  Receipt Date: 20171108
  Transmission Date: 20180321
  Serious: Yes (Life-Threatening, Hospitalization)
  Sender: FDA-Public Use
  Company Number: None

PATIENT
  Age: 72 Year
  Sex: Female
  Weight: 95.2 kg

DRUGS (1)
  1. OXALIPLATIN. [Suspect]
     Active Substance: OXALIPLATIN
     Dosage: ?          OTHER FREQUENCY:EVERY 2 WEEKS;?
     Route: 042
     Dates: start: 20170808, end: 20171031

REACTIONS (7)
  - Dizziness [None]
  - Dyspnoea [None]
  - Unresponsive to stimuli [None]
  - Paraesthesia [None]
  - Hypersensitivity [None]
  - Cardio-respiratory arrest [None]
  - Apnoea [None]

NARRATIVE: CASE EVENT DATE: 20171031
